FAERS Safety Report 10382348 (Version 1)
Quarter: 2014Q3

REPORT INFORMATION
  Report Type: Spontaneous
  Country: US (occurrence: None)
  Receive Date: 20140811
  Receipt Date: 20140811
  Transmission Date: 20150326
  Serious: Yes (Hospitalization, Disabling)
  Sender: FDA-Public Use
  Company Number: 201408002

PATIENT
  Age: 67 Year
  Sex: Male

DRUGS (2)
  1. TESTOPEL [Suspect]
     Active Substance: TESTOSTERONE
     Indication: BLOOD TESTOSTERONE DECREASED
     Route: 058
     Dates: start: 201108, end: 201202
  2. ANDROGEL [Suspect]
     Active Substance: TESTOSTERONE
     Indication: BLOOD TESTOSTERONE DECREASED
     Route: 061
     Dates: start: 201001, end: 201112

REACTIONS (7)
  - Anhedonia [None]
  - Post procedural complication [None]
  - Pain [None]
  - Injury [None]
  - Unevaluable event [None]
  - Coronary artery bypass [None]
  - Anxiety [None]

NARRATIVE: CASE EVENT DATE: 20120913
